FAERS Safety Report 9740018 (Version 2)
Quarter: 2014Q1

REPORT INFORMATION
  Report Type: Spontaneous
  Country: DE (occurrence: DE)
  Receive Date: 20131209
  Receipt Date: 20140214
  Transmission Date: 20141002
  Serious: Yes (Other)
  Sender: FDA-Public Use
  Company Number: DE-UCBSA-104680

PATIENT
  Age: 34 Year
  Sex: Male
  Weight: 62 kg

DRUGS (2)
  1. VIMPAT [Suspect]
     Dosage: DOSE: 200 MG, NO OF DOSES RECEIVED:2
     Dates: start: 20131104, end: 20131204
  2. LAMOTRIGINE [Suspect]
     Dosage: 150 MG,NO OF DOSES RECEIVED :2X

REACTIONS (3)
  - Thrombocytopenia [Recovered/Resolved]
  - Red blood cell count decreased [Recovered/Resolved]
  - Leukopenia [Recovered/Resolved]
